FAERS Safety Report 4351518-1 (Version None)
Quarter: 2004Q2

REPORT INFORMATION
  Report Type: 
  Country: None (occurrence: None)
  Receive Date: 20040430
  Receipt Date: 20040430
  Transmission Date: 20050107
  Serious: Yes (Hospitalization)
  Sender: FDA-Public Use
  Company Number: None

PATIENT
  Age: 60 Year
  Sex: Male
  Weight: 76.2043 kg

DRUGS (5)
  1. MEFLOQUINE [Suspect]
     Indication: MALARIA PROPHYLAXIS
     Dosage: 1 PER WEEK
     Dates: start: 20031019
  2. MEFLOQUINE [Suspect]
     Indication: MALARIA PROPHYLAXIS
     Dosage: 1 PER WEEK
     Dates: start: 20031026
  3. MEFLOQUINE [Suspect]
     Indication: MALARIA PROPHYLAXIS
     Dosage: 1 PER WEEK
     Dates: start: 20031102
  4. MEFLOQUINE [Suspect]
     Indication: MALARIA PROPHYLAXIS
     Dosage: 1 PER WEEK
     Dates: start: 20031109
  5. MINOCYCLINE HCL [Suspect]
     Indication: ROSACEA
     Dosage: 200MG FIRST DAY, 100MG AFTER
     Dates: start: 20031112

REACTIONS (1)
  - LOSS OF CONSCIOUSNESS [None]
